FAERS Safety Report 8307420-3 (Version None)
Quarter: 2012Q2

REPORT INFORMATION
  Report Type: 
  Country: None (occurrence: None)
  Receive Date: 20120424
  Receipt Date: 20120413
  Transmission Date: 20120825
  Serious: Yes (Hospitalization, Other)
  Sender: FDA-Public Use
  Company Number: PHHY2012AU031138

PATIENT
  Sex: Male

DRUGS (1)
  1. CLOZARIL [Suspect]
     Dosage: 300 MG, UNK
     Route: 048
     Dates: start: 20120319, end: 20120404

REACTIONS (7)
  - TROPONIN INCREASED [None]
  - MYOCARDITIS [None]
  - RESPIRATORY DISORDER [None]
  - CARDIAC DISORDER [None]
  - NAUSEA [None]
  - PNEUMONIA [None]
  - LEGIONELLA TEST POSITIVE [None]
